FAERS Safety Report 6974885-9 (Version None)
Quarter: 2010Q3

REPORT INFORMATION
  Report Type: 
  Country: None (occurrence: None)
  Receive Date: 20100909
  Receipt Date: 20081229
  Transmission Date: 20110219
  Serious: No
  Sender: FDA-Public Use
  Company Number: US-WYE-H07430208

PATIENT
  Age: 30 Year
  Sex: Female

DRUGS (2)
  1. PRISTIQ [Suspect]
     Indication: DEPRESSION
     Route: 048
  2. CLONOPIN [Concomitant]
     Dosage: 1 MG

REACTIONS (8)
  - ABDOMINAL DISTENSION [None]
  - ABDOMINAL PAIN [None]
  - ASTHENIA [None]
  - DRUG WITHDRAWAL SYNDROME [None]
  - LETHARGY [None]
  - NAUSEA [None]
  - PALLOR [None]
  - VOMITING [None]
